FAERS Safety Report 15301989 (Version 1)
Quarter: 2018Q3

REPORT INFORMATION
  Report Type: Spontaneous
  Country: GB (occurrence: GB)
  Receive Date: 20180821
  Receipt Date: 20180821
  Transmission Date: 20181010
  Serious: Yes (Disabling, Other)
  Sender: FDA-Public Use
  Company Number: GB-TEVA-2018-GB-944557

PATIENT
  Age: 83 Year
  Sex: Male
  Weight: 76 kg

DRUGS (19)
  1. COSMOCOL [Concomitant]
     Dosage: 2?3 PER DAY.
     Route: 065
     Dates: start: 20180718
  2. RETINOL [Concomitant]
     Active Substance: RETINOL
     Dosage: 3 DOSAGE FORMS DAILY;
     Route: 065
     Dates: start: 20170911
  3. TICAGRELOR. [Concomitant]
     Active Substance: TICAGRELOR
     Dosage: 2 DOSAGE FORMS DAILY;
     Route: 065
     Dates: start: 20180320
  4. DOXYCYCLINE. [Suspect]
     Active Substance: DOXYCYCLINE
     Route: 065
     Dates: start: 20180723
  5. FOLIC ACID. [Concomitant]
     Active Substance: FOLIC ACID
     Dosage: 1 DOSAGE FORMS DAILY;
     Route: 065
     Dates: start: 20180124
  6. LANSOPRAZOLE. [Concomitant]
     Active Substance: LANSOPRAZOLE
     Dosage: 1 DOSAGE FORMS DAILY; IN THE MORNING.
     Route: 065
     Dates: start: 20150407
  7. BISOPROLOL [Concomitant]
     Active Substance: BISOPROLOL
     Dosage: 1 DOSAGE FORMS DAILY;
     Route: 065
     Dates: start: 20180320
  8. FINASTERIDE. [Concomitant]
     Active Substance: FINASTERIDE
     Dosage: 1 DOSAGE FORMS DAILY;
     Route: 065
     Dates: start: 20140701
  9. M+A PHARMACHEM ASPIRIN [Concomitant]
     Dosage: 1 DOSAGE FORMS DAILY;
     Route: 065
     Dates: start: 20180413
  10. XYLOPROCT [Concomitant]
     Route: 065
     Dates: start: 20180424, end: 20180501
  11. ATORVASTATIN [Concomitant]
     Active Substance: ATORVASTATIN
     Dosage: 1 DOSAGE FORMS DAILY;
     Route: 065
     Dates: start: 20180320
  12. GLYCERYL TRINITRATE [Concomitant]
     Active Substance: NITROGLYCERIN
     Dosage: USE 1?2 SPRAYS WHEN REQUIRED F...
     Route: 060
     Dates: start: 20180419
  13. RAMIPRIL. [Concomitant]
     Active Substance: RAMIPRIL
     Dosage: 1 DOSAGE FORMS DAILY; IN THE EVENING.
     Route: 065
     Dates: start: 20180320
  14. ADCAL [Concomitant]
     Active Substance: CALCIUM CARBONATE
     Dosage: 2 DOSAGE FORMS DAILY;
     Route: 065
     Dates: start: 20170315
  15. CREON [Concomitant]
     Active Substance: PANCRELIPASE AMYLASE\PANCRELIPASE LIPASE\PANCRELIPASE PROTEASE
     Dosage: 6 DOSAGE FORMS DAILY;
     Route: 065
     Dates: start: 20130507
  16. LANTUS [Concomitant]
     Active Substance: INSULIN GLARGINE
     Dosage: 30 IU (INTERNATIONAL UNIT) DAILY; IN THE MORNING.
     Route: 065
     Dates: start: 20150324
  17. FUROSEMIDE. [Concomitant]
     Active Substance: FUROSEMIDE
     Route: 065
     Dates: start: 20170904
  18. CASSIA [Concomitant]
     Dosage: NOCTE
     Route: 065
     Dates: start: 20180320
  19. METFORMIN [Concomitant]
     Active Substance: METFORMIN HYDROCHLORIDE
     Route: 065
     Dates: start: 20130507

REACTIONS (2)
  - Peripheral swelling [Not Recovered/Not Resolved]
  - Pain [Unknown]

NARRATIVE: CASE EVENT DATE: 20180723
